FAERS Safety Report 6382865-X (Version None)
Quarter: 2009Q3

REPORT INFORMATION
  Report Type: 
  Country: None (occurrence: None)
  Receive Date: 20090930
  Receipt Date: 20090918
  Transmission Date: 20100115
  Serious: Yes (Other)
  Sender: FDA-Public Use
  Company Number: US-PFIZER INC-2009271144

PATIENT
  Sex: Female
  Weight: 58 kg

DRUGS (17)
  1. PROVERA [Suspect]
     Indication: HORMONE REPLACEMENT THERAPY
     Dosage: UNK
     Route: 048
     Dates: start: 19970101, end: 19980101
  2. PREMARIN [Suspect]
     Indication: HORMONE REPLACEMENT THERAPY
     Dosage: 0.9 MG, UNK
     Dates: start: 19890101, end: 20030101
  3. PREMPRO [Suspect]
     Indication: HORMONE REPLACEMENT THERAPY
     Dosage: 0.625/ 2.5MG
     Dates: start: 19970101, end: 19980101
  4. PROMETRIUM [Suspect]
     Indication: HORMONE REPLACEMENT THERAPY
     Dosage: 200 MG, UNK
     Dates: start: 19980101, end: 20030101
  5. ESTRACE [Suspect]
     Indication: HORMONE REPLACEMENT THERAPY
     Dosage: 2 MG, UNK
     Dates: start: 19980101
  6. ESTRIOL [Suspect]
     Indication: HORMONE REPLACEMENT THERAPY
     Dosage: 2 MG, UNK
     Dates: start: 19980101
  7. MEDROXYPROGESTERONE ACETATE [Suspect]
     Indication: HORMONE REPLACEMENT THERAPY
     Dosage: 2.5 MG, UNK
     Dates: start: 19970101
  8. PREMARIN [Suspect]
     Dosage: 0.625 MG, UNK
     Route: 067
     Dates: start: 19970101, end: 19980101
  9. PREMPHASE 14/14 [Suspect]
     Indication: HORMONE REPLACEMENT THERAPY
     Dosage: UNK
     Dates: start: 19980101
  10. CYCRIN [Suspect]
     Indication: HORMONE REPLACEMENT THERAPY
     Dosage: 5 MG, UNK
     Dates: start: 19980101
  11. SINGULAIR ^DIECKMANN^ [Concomitant]
     Indication: CHRONIC OBSTRUCTIVE PULMONARY DISEASE
     Dosage: UNK
     Dates: start: 20050101
  12. HYZAAR [Concomitant]
     Indication: HYPERTENSION
     Dosage: 50/ 12.5MG
     Dates: start: 20050101
  13. CALCIUM [Concomitant]
     Indication: MINERAL SUPPLEMENTATION
     Dosage: 600 MG, UNK
     Dates: start: 20050101
  14. MULTI-VITAMINS [Concomitant]
     Indication: VITAMIN SUPPLEMENTATION
     Dosage: UNK
     Dates: start: 20050101
  15. CELEBREX [Concomitant]
     Indication: PAIN
     Dosage: UNK
     Dates: start: 20000101
  16. ASPIRIN [Concomitant]
     Dosage: UNK
     Dates: start: 19900101
  17. GENERAL NUTRIENTS/HERBAL NOS/MINERALS NOS/VITAMINS NOS [Concomitant]
     Indication: VITAMIN SUPPLEMENTATION
     Dosage: UNK
     Dates: start: 20040101, end: 20090801

REACTIONS (4)
  - ASTHENIA [None]
  - B-CELL LYMPHOMA [None]
  - DECREASED APPETITE [None]
  - RESPIRATORY FAILURE [None]
